FAERS Safety Report 9089623 (Version 1)
Quarter: 2013Q1

REPORT INFORMATION
  Report Type: Spontaneous
  Country: US (occurrence: US)
  Receive Date: 20130218
  Receipt Date: 20130218
  Transmission Date: 20140127
  Serious: No
  Sender: FDA-Public Use
  Company Number: US-ABBOTT-12P-163-0926484-00

PATIENT
  Sex: Male
  Weight: 81.72 kg

DRUGS (2)
  1. SIMCOR 1000MG/20MG [Suspect]
     Indication: BLOOD CHOLESTEROL
     Route: 048
     Dates: start: 2010
  2. TESTIM [Suspect]
     Indication: BLOOD TESTOSTERONE DECREASED
     Route: 062
     Dates: start: 2010

REACTIONS (7)
  - Hair texture abnormal [Unknown]
  - Alopecia [Not Recovered/Not Resolved]
  - Erythema [Unknown]
  - Flushing [Unknown]
  - Generalised erythema [Unknown]
  - Flushing [Unknown]
  - Weight decreased [Unknown]
